FAERS Safety Report 9513422 (Version 5)
Quarter: 2014Q1

REPORT INFORMATION
  Report Type: Spontaneous
  Country: JP (occurrence: JP)
  Receive Date: 20130910
  Receipt Date: 20140228
  Transmission Date: 20141002
  Serious: Yes (Hospitalization)
  Sender: FDA-Public Use
  Company Number: JP-TEVA-430778USA

PATIENT
  Age: 43 Year
  Sex: Male

DRUGS (7)
  1. NOBELZIN [Suspect]
     Indication: HEPATO-LENTICULAR DEGENERATION
     Route: 048
     Dates: start: 20110830, end: 20130930
  2. NOBELZIN [Suspect]
     Route: 048
     Dates: start: 20131001, end: 20131022
  3. METALCAPTASE [Concomitant]
     Indication: HEPATO-LENTICULAR DEGENERATION
     Dosage: 600 MILLIGRAM DAILY;
     Route: 048
     Dates: start: 20110830, end: 20130819
  4. METALCAPTASE [Concomitant]
     Dosage: 300 MILLIGRAM DAILY;
     Route: 048
     Dates: start: 20130820, end: 20130826
  5. METALCAPTASE [Concomitant]
     Dosage: 600 MILLIGRAM DAILY;
     Route: 048
     Dates: start: 20130827, end: 20131001
  6. PYDOXAL [Concomitant]
     Indication: HEPATO-LENTICULAR DEGENERATION
     Dosage: 60 MILLIGRAM DAILY;
     Route: 048
     Dates: start: 198711
  7. ARTANE [Concomitant]
     Indication: HEPATO-LENTICULAR DEGENERATION
     Dosage: 6 MILLIGRAM DAILY;
     Dates: start: 198711

REACTIONS (3)
  - Hepato-lenticular degeneration [Unknown]
  - Oedema peripheral [Not Recovered/Not Resolved]
  - Extrapyramidal disorder [Not Recovered/Not Resolved]
